FAERS Safety Report 9124929 (Version 2)
Quarter: 2013Q2

REPORT INFORMATION
  Report Type: Spontaneous
  Country: US (occurrence: US)
  Receive Date: 20130227
  Receipt Date: 20130403
  Transmission Date: 20140414
  Serious: Yes (Other)
  Sender: FDA-Public Use
  Company Number: US-PFIZER INC-2013066731

PATIENT
  Age: 80 Year
  Sex: Female

DRUGS (1)
  1. TOVIAZ [Suspect]
     Dosage: 4 MG, UNK
     Dates: start: 201302

REACTIONS (3)
  - Drug interaction [Unknown]
  - Joint range of motion decreased [Unknown]
  - Neck pain [Not Recovered/Not Resolved]
